FAERS Safety Report 16005810 (Version 2)
Quarter: 2019Q2

REPORT INFORMATION
  Report Type: Spontaneous
  Country: US (occurrence: US)
  Receive Date: 20190226
  Receipt Date: 20190405
  Transmission Date: 20190711
  Serious: No
  Sender: FDA-Public Use
  Company Number: US-GLAXOSMITHKLINE-US2019031671

PATIENT
  Sex: Female

DRUGS (1)
  1. VENTOLIN HFA [Suspect]
     Active Substance: ALBUTEROL SULFATE
     Indication: PRODUCT USED FOR UNKNOWN INDICATION
     Dosage: 1 TO 2 PUFF(S), EVERY 4 TO 6 HOURS AS NEEDED
     Route: 055

REACTIONS (3)
  - Incorrect dose administered [Unknown]
  - Product complaint [Unknown]
  - Wrong technique in device usage process [Unknown]
